FAERS Safety Report 21328584 (Version 1)
Quarter: 2022Q3

REPORT INFORMATION
  Report Type: Spontaneous
  Country: GB (occurrence: GB)
  Receive Date: 20220913
  Receipt Date: 20220913
  Transmission Date: 20221027
  Serious: Yes (Death, Hospitalization, Other)
  Sender: FDA-Public Use
  Company Number: GB-Morningside Healthcare Ltd-MSH202208-000027

PATIENT
  Age: 59 Year
  Sex: Male
  Weight: 62 kg

DRUGS (129)
  1. ARIPIPRAZOLE [Suspect]
     Active Substance: ARIPIPRAZOLE
     Indication: Schizophrenia
     Dosage: 5 MG, UNIT DOSE : 5 MG,
     Route: 065
  2. ARIPIPRAZOLE [Suspect]
     Active Substance: ARIPIPRAZOLE
     Route: 065
  3. ARIPIPRAZOLE [Suspect]
     Active Substance: ARIPIPRAZOLE
     Route: 065
  4. ARIPIPRAZOLE [Suspect]
     Active Substance: ARIPIPRAZOLE
     Dosage: 5 MG,  UNIT DOSE : 5 MG
     Route: 065
  5. HALOPERIDOL [Suspect]
     Active Substance: HALOPERIDOL
     Indication: Schizophrenia
     Dosage: 10 MG, BID, UNIT DOSE : 10 MG, FREQUENCY ; 1 , FREQUENCY TIME : 1 DAYS,
     Route: 065
  6. HALOPERIDOL [Suspect]
     Active Substance: HALOPERIDOL
     Dosage: 5 MILLIGRAM, BID, UNIT DOSE : 10 MG, FREQUENCY ; 1 , FREQUENCY TIME : 1 DAYS,
     Route: 048
  7. HALOPERIDOL [Suspect]
     Active Substance: HALOPERIDOL
     Dosage: 20 MILLIGRAM DAILY; UNIT DOSE : 20 MG, FREQUENCY ; 1 , FREQUENCY TIME : 1 DAYS,
     Route: 048
  8. HALOPERIDOL [Suspect]
     Active Substance: HALOPERIDOL
     Dosage: 10 MILLIGRAM DAILY;
     Route: 048
  9. HALOPERIDOL [Suspect]
     Active Substance: HALOPERIDOL
     Dosage: 20 MILLIGRAM DAILY; UNIT DOSE : 20 MG, FREQUENCY ; 1 , FREQUENCY TIME : 1 DAYS)
     Route: 065
  10. HALOPERIDOL [Suspect]
     Active Substance: HALOPERIDOL
     Dosage: 10 MILLIGRAM DAILY; UNIT DOSE : 10 MG, FREQUENCY ; 1 , FREQUENCY TIME : 1 DAYS
     Route: 048
  11. HALOPERIDOL [Suspect]
     Active Substance: HALOPERIDOL
     Dosage: 5 MG, BID, UNIT DOSE :5 MG, FREQUENCY ; 1 , FREQUENCY TIME : 1 DAYS
     Route: 048
  12. HALOPERIDOL [Suspect]
     Active Substance: HALOPERIDOL
     Dosage: 20MG BID, UNIT DOSE : 40 MG, FREQUENCY ; 1 , FREQUENCY TIME : 1 DAYS,
     Route: 048
  13. HALOPERIDOL [Suspect]
     Active Substance: HALOPERIDOL
     Dosage: 10 MILLIGRAM DAILY;
     Route: 065
  14. HALOPERIDOL [Suspect]
     Active Substance: HALOPERIDOL
     Dosage: 20 MILLIGRAM DAILY;
     Route: 048
  15. OLANZAPINE [Suspect]
     Active Substance: OLANZAPINE
     Indication: Schizophrenia
     Route: 065
  16. OLANZAPINE [Suspect]
     Active Substance: OLANZAPINE
     Dosage: 15 MG, UNIT DOSE : 15 MG, THERAPY END DATE : NOT ASKED
     Route: 065
     Dates: start: 20060704
  17. OLANZAPINE [Suspect]
     Active Substance: OLANZAPINE
     Route: 065
  18. OLANZAPINE [Suspect]
     Active Substance: OLANZAPINE
     Dosage: 10 MG, UNIT DOSE : 10 MG,
     Route: 065
  19. OLANZAPINE [Suspect]
     Active Substance: OLANZAPINE
     Dosage: 10 MILLIGRAM, UNIT DOSE : 10 MG,
     Route: 065
  20. OLANZAPINE [Suspect]
     Active Substance: OLANZAPINE
     Dosage: 10 MILLIGRAM, UNIT DOSE : 10 MG,
     Route: 065
  21. OLANZAPINE [Suspect]
     Active Substance: OLANZAPINE
     Dosage: 1 MILLIGRAM, UNIT DOSE : 1 MG,
     Route: 065
  22. OLANZAPINE [Suspect]
     Active Substance: OLANZAPINE
     Dosage: 15 MG, UNKNOWN, UNIT DOSE : 15 MG,   THERAPY END DATE : NOT ASKED
     Route: 065
     Dates: start: 20040217
  23. OLANZAPINE [Suspect]
     Active Substance: OLANZAPINE
     Dosage: 10 MG, UNIT DOSE : 10 MG
     Route: 065
  24. OLANZAPINE [Suspect]
     Active Substance: OLANZAPINE
     Dosage: 10 MG, UNIT DOSE : 10 MG
     Route: 065
  25. OLANZAPINE [Suspect]
     Active Substance: OLANZAPINE
     Route: 065
  26. OLANZAPINE [Suspect]
     Active Substance: OLANZAPINE
     Dosage: 10 MG, UNKNOWN, UNIT DOSE : 10 MG
     Route: 065
  27. OLANZAPINE [Suspect]
     Active Substance: OLANZAPINE
     Dosage: 2.5 MG, UNKNOWN, UNIT DOSE :2.5  MG, THERAPY END DATE : NOT ASKED
     Route: 065
     Dates: start: 20080823
  28. RISPERIDONE [Suspect]
     Active Substance: RISPERIDONE
     Indication: Schizophrenia
     Dosage: 3 MG, BID, UNIT DOSE : 3 MG, FREQUENCY ; 1 , FREQUENCY TIME : 1 DAYS,
     Route: 048
  29. RISPERIDONE [Suspect]
     Active Substance: RISPERIDONE
     Dosage: 1 GRAM DAILY;  UNIT DOSE : 1 GRAM, FREQUENCY TIME : 1 DAYS,
     Route: 065
  30. RISPERIDONE [Suspect]
     Active Substance: RISPERIDONE
     Dosage: ( 2 MG BID),  UNIT DOSE : 4 MG, FREQUENCY ; 1 , FREQUENCY TIME : 1 DAYS,
     Route: 065
  31. RISPERIDONE [Suspect]
     Active Substance: RISPERIDONE
     Dosage: 2 MG, BID,  UNIT DOSE : 2 MG, FREQUENCY ; 1 , FREQUENCY TIME : 1 DAYS,
     Route: 065
  32. RISPERIDONE [Suspect]
     Active Substance: RISPERIDONE
     Dosage: 1 MILLIGRAM DAILY;  UNIT DOSE : 1 MG, FREQUENCY ; 1 , FREQUENCY TIME : 1 DAYS,
     Route: 065
  33. RISPERIDONE [Suspect]
     Active Substance: RISPERIDONE
     Dosage: UNK
     Route: 065
  34. RISPERDAL [Suspect]
     Active Substance: RISPERIDONE
     Indication: Schizophrenia
     Dosage: 6 MILLIGRAM DAILY; UNIT DOSE : 6  MG, FREQUENCY ; 1 , FREQUENCY TIME : 1 DAYS
     Route: 065
  35. RISPERDAL [Suspect]
     Active Substance: RISPERIDONE
     Dosage: 4 MILLIGRAM DAILY; UNIT DOSE : 4  MG, FREQUENCY ; 1 , FREQUENCY TIME : 1 DAYS
     Route: 065
  36. RISPERDAL [Suspect]
     Active Substance: RISPERIDONE
     Dosage: 4 MILLIGRAM DAILY; UNIT DOSE : 4  MG, FREQUENCY ; 1 , FREQUENCY TIME : 1 DAYS
     Route: 065
  37. RISPERDAL [Suspect]
     Active Substance: RISPERIDONE
     Dosage: 4 MILLIGRAM DAILY; UNIT DOSE : 4  MG, FREQUENCY ; 1 , FREQUENCY TIME : 1 DAYS
     Route: 065
  38. RISPERDAL [Suspect]
     Active Substance: RISPERIDONE
     Dosage: 6 MILLIGRAM DAILY; UNIT DOSE : 6  MG, FREQUENCY ; 1 , FREQUENCY TIME : 1 DAYS
     Route: 065
  39. RISPERDAL [Suspect]
     Active Substance: RISPERIDONE
     Dosage: 1 MILLIGRAM DAILY; UNIT DOSE : 1  MG, FREQUENCY ; 1 , FREQUENCY TIME : 1 DAYS
     Route: 065
  40. RISPERDAL [Suspect]
     Active Substance: RISPERIDONE
     Dosage: 4 MILLIGRAM DAILY; UNIT DOSE : 4  MG, FREQUENCY ; 1 , FREQUENCY TIME : 1 DAYS
     Route: 065
  41. RISPERDAL [Suspect]
     Active Substance: RISPERIDONE
     Dosage: 1 GRAM DAILY; UNIT DOSE : 1 GRAM, FREQUENCY ; 1 , FREQUENCY TIME : 1 DAYS
     Route: 065
  42. RISPERDAL [Suspect]
     Active Substance: RISPERIDONE
     Dosage: 6 MILLIGRAM DAILY; UNIT DOSE : 6  MG, FREQUENCY ; 1 , FREQUENCY TIME : 1 DAYS
     Route: 065
  43. RISPERDAL [Suspect]
     Active Substance: RISPERIDONE
     Dosage: 1 GRAM DAILY; UNIT DOSE : 1 GRAM, FREQUENCY ; 1 , FREQUENCY TIME : 1 DAYS
     Route: 065
  44. RISPERDAL [Suspect]
     Active Substance: RISPERIDONE
     Dosage: 1 MILLIGRAM DAILY; UNIT DOSE : 1  MG, FREQUENCY ; 1 , FREQUENCY TIME : 1 DAYS
     Route: 065
  45. RISPERDAL [Suspect]
     Active Substance: RISPERIDONE
     Dosage: 1 MILLIGRAM DAILY; UNIT DOSE : 1  MG, FREQUENCY ; 1 , FREQUENCY TIME : 1 DAYS
     Route: 065
  46. RISPERDAL [Suspect]
     Active Substance: RISPERIDONE
     Dosage: 6 MILLIGRAM DAILY; UNIT DOSE : 6  MG, FREQUENCY ; 1 , FREQUENCY TIME : 1 DAYS
     Route: 065
  47. RISPERDAL [Suspect]
     Active Substance: RISPERIDONE
     Dosage: 4 MILLIGRAM DAILY; UNIT DOSE : 4  MG, FREQUENCY ; 1 , FREQUENCY TIME : 1 DAYS
     Route: 065
  48. RISPERDAL [Suspect]
     Active Substance: RISPERIDONE
     Dosage: 4 MILLIGRAM DAILY; UNIT DOSE : 4  MG, FREQUENCY ; 1 , FREQUENCY TIME : 1 DAYS
     Route: 065
  49. RISPERDAL [Suspect]
     Active Substance: RISPERIDONE
     Dosage: 6 MILLIGRAM DAILY; UNIT DOSE : 6  MG, FREQUENCY ; 1 , FREQUENCY TIME : 1 DAYS
     Route: 048
  50. RISPERDAL [Suspect]
     Active Substance: RISPERIDONE
     Dosage: 1 GRAM DAILY; UNIT DOSE : 1 GRAM, FREQUENCY ; 1 , FREQUENCY TIME : 1 DAYS
     Route: 065
  51. RISPERDAL [Suspect]
     Active Substance: RISPERIDONE
     Dosage: 1 MILLIGRAM DAILY; UNIT DOSE : 1  MG, FREQUENCY ; 1 , FREQUENCY TIME : 1 DAYS
     Route: 065
  52. RISPERDAL [Suspect]
     Active Substance: RISPERIDONE
     Dosage: 3 MILLIGRAM DAILY; UNIT DOSE : 3  MG, FREQUENCY ; 1 , FREQUENCY TIME : 1 DAYS
     Route: 048
  53. RISPERDAL [Suspect]
     Active Substance: RISPERIDONE
     Dosage: 4 MILLIGRAM DAILY; UNIT DOSE : 4  MG, FREQUENCY ; 1 , FREQUENCY TIME : 1 DAYS
     Route: 065
  54. RISPERDAL [Suspect]
     Active Substance: RISPERIDONE
     Dosage: 1 GRAM DAILY; UNIT DOSE : 1 GRAM, FREQUENCY ; 1 , FREQUENCY TIME : 1 DAYS
     Route: 065
  55. RISPERDAL [Suspect]
     Active Substance: RISPERIDONE
     Dosage: 1 GRAM DAILY; UNIT DOSE : 1 GRAM, FREQUENCY ; 1 , FREQUENCY TIME : 1 DAYS
     Route: 065
  56. RISPERDAL [Suspect]
     Active Substance: RISPERIDONE
     Dosage: 1 MILLIGRAM DAILY; UNIT DOSE : 1  MG, FREQUENCY ; 1 , FREQUENCY TIME : 1 DAYS
     Route: 065
  57. RISPERDAL [Suspect]
     Active Substance: RISPERIDONE
     Dosage: 6 MILLIGRAM DAILY; UNIT DOSE : 6  MG, FREQUENCY ; 1 , FREQUENCY TIME : 1 DAYS
     Route: 065
  58. RISPERDAL [Suspect]
     Active Substance: RISPERIDONE
     Dosage: 4 MILLIGRAM DAILY; UNIT DOSE : 4  MG, FREQUENCY ; 1 , FREQUENCY TIME : 1 DAYS
     Route: 065
  59. RISPERDAL [Suspect]
     Active Substance: RISPERIDONE
     Dosage: 1 MILLIGRAM DAILY; UNIT DOSE : 1  MG, FREQUENCY ; 1 , FREQUENCY TIME : 1 DAYS
     Route: 065
  60. RISPERDAL [Suspect]
     Active Substance: RISPERIDONE
     Dosage: 6 MILLIGRAM DAILY; UNIT DOSE : 6  MG, FREQUENCY ; 1 , FREQUENCY TIME : 1 DAYS
     Route: 065
  61. RISPERDAL [Suspect]
     Active Substance: RISPERIDONE
     Dosage: 4 MILLIGRAM DAILY; UNIT DOSE : 4  MG, FREQUENCY ; 1 , FREQUENCY TIME : 1 DAYS
     Route: 065
  62. RISPERDAL [Suspect]
     Active Substance: RISPERIDONE
     Dosage: 1 GRAM DAILY; UNIT DOSE : 1 GRAM, FREQUENCY ; 1 , FREQUENCY TIME : 1 DAYS
     Route: 065
  63. RISPERDAL [Suspect]
     Active Substance: RISPERIDONE
     Dosage: 6 MILLIGRAM DAILY; UNIT DOSE : 6  MG, FREQUENCY ; 1 , FREQUENCY TIME : 1 DAYS
     Route: 065
  64. RISPERDAL [Suspect]
     Active Substance: RISPERIDONE
     Dosage: 6 MILLIGRAM DAILY; UNIT DOSE : 6  MG, FREQUENCY ; 1 , FREQUENCY TIME : 1 DAYS
     Route: 048
  65. TRASTUZUMAB [Suspect]
     Active Substance: TRASTUZUMAB
     Indication: Product used for unknown indication
     Dosage: 609 MG, 2/W, UNIT DOSE : 1218 MG, FREQUENCY ; 1 , FREQUENCY TIME : 1 WEEKS, THERAPY END DATE : NOT A
     Route: 065
     Dates: start: 20150930
  66. TRASTUZUMAB [Suspect]
     Active Substance: TRASTUZUMAB
     Dosage: 420 MG, Q3W (CUMULATIVE DOSE: 820.83 MG), UNIT DOSE : 420 MG, FREQUENCY ; 1 , FREQUENCY TIME : 3  WE
     Route: 065
  67. TRASTUZUMAB [Suspect]
     Active Substance: TRASTUZUMAB
     Dosage: 840 MG, Q3W (CUMULATIVE DOSE: 2481.6667 MG, UNIT DOSE : 840 MG, FREQUENCY ; 1 , FREQUENCY TIME : 1 W
     Route: 065
  68. PERTUZUMAB [Suspect]
     Active Substance: PERTUZUMAB
     Indication: Product used for unknown indication
     Dosage: 840 MG, Q3W (CUMULATIVE DOSE: 2481.6667 MG, UNIT DOSE : 840 MG, FREQUENCY ; 1 , FREQUENCY TIME : 3 W
     Route: 065
  69. PERTUZUMAB [Suspect]
     Active Substance: PERTUZUMAB
     Route: 065
  70. PERTUZUMAB [Suspect]
     Active Substance: PERTUZUMAB
     Dosage: 420 MG, Q3W (CUMULATIVE DOSE: 820.83 MG), UNIT DOSE : 420 MG, FREQUENCY ; 1 , FREQUENCY TIME : 3 WEE
     Route: 065
  71. LITHIUM [Suspect]
     Active Substance: LITHIUM
     Indication: Product used for unknown indication
     Dosage: 1 G, UNIT DOSE : 1 GRAM
     Route: 065
  72. LITHIUM [Suspect]
     Active Substance: LITHIUM
     Dosage: 1 G, UNKNOWN, UNIT DOSE : 1 GRAM
     Route: 065
  73. LITHIUM [Suspect]
     Active Substance: LITHIUM
     Dosage: 2 G, UNKNOWN, UNIT DOSE : 2 GRAM
     Route: 065
  74. LITHIUM [Suspect]
     Active Substance: LITHIUM
     Dosage: 1 G, UNIT DOSE : 1 GRAM
     Route: 065
  75. LITHIUM [Suspect]
     Active Substance: LITHIUM
     Dosage: 2 G, UNIT DOSE : 2 GRAM
     Route: 065
  76. LITHIUM [Suspect]
     Active Substance: LITHIUM
     Dosage: 2 G, UNIT DOSE : 2 GRAM
     Route: 065
  77. LITHIUM [Suspect]
     Active Substance: LITHIUM
     Dosage: 6 MILLIGRAM DAILY; UNIT DOSE : 6 MG, FREQUENCY ; 1 , FREQUENCY TIME : 1 DAYS,
     Route: 065
  78. LITHIUM [Suspect]
     Active Substance: LITHIUM
     Dosage: 1 MG, UNIT DOSE : 1 MG
     Route: 048
  79. LITHIUM [Suspect]
     Active Substance: LITHIUM
     Dosage: 1 G, UNIT DOSE : 1 GRAM
     Route: 065
  80. LITHIUM [Suspect]
     Active Substance: LITHIUM
     Dosage: 1 G, UNIT DOSE : 1 GRAM
     Route: 065
  81. LITHIUM [Suspect]
     Active Substance: LITHIUM
     Dosage: 1 G, UNIT DOSE : 1 GRAM
     Route: 065
  82. LORAZEPAM [Suspect]
     Active Substance: LORAZEPAM
     Indication: Schizophrenia
     Dosage: 1 MG, UNKNOWN, UNIT DOSE : 1 MG
     Route: 048
  83. LORAZEPAM [Suspect]
     Active Substance: LORAZEPAM
     Dosage: 1 MG, UNIT DOSE : 1 MG
     Route: 048
  84. LORAZEPAM [Suspect]
     Active Substance: LORAZEPAM
     Dosage: 1 MG, UNIT DOSE : 1 MG
     Route: 048
  85. LORAZEPAM [Suspect]
     Active Substance: LORAZEPAM
     Dosage: 1 MG, UNIT DOSE : 1 MG
     Route: 048
  86. LORAZEPAM [Suspect]
     Active Substance: LORAZEPAM
     Dosage: 1 MG, UNIT DOSE : 1 MG
     Route: 048
  87. LORAZEPAM [Suspect]
     Active Substance: LORAZEPAM
     Dosage: 1 MG,UNIT DOSE : 1 MG
     Route: 048
  88. DOCETAXEL [Suspect]
     Active Substance: DOCETAXEL
     Indication: Product used for unknown indication
     Dosage: 220 MG, UNIT DOSE : 220 MG
     Route: 065
  89. CLOZARIL [Suspect]
     Active Substance: CLOZAPINE
     Indication: Schizophrenia
     Dosage: 400 MILLIGRAM DAILY; UNIT DOSE : 400 MG, FREQUENCY ; 1 , FREQUENCY TIME : 1 DAYS,  THERAPY DURATION
     Route: 048
     Dates: start: 20201207
  90. CLOZARIL [Suspect]
     Active Substance: CLOZAPINE
     Dosage: 1 DOSAGE FORMS DAILY; EACH MORNING, UNIT DOSE : 1 DOSAGE FORMS, FREQUENCY ; 1 , FREQUENCY TIME : 1 D
     Route: 048
     Dates: start: 2011
  91. CLOZARIL [Suspect]
     Active Substance: CLOZAPINE
     Dosage: 400 MILLIGRAM DAILY; UNIT DOSE : 400 MG, FREQUENCY ; 1 , FREQUENCY TIME : 1 DAYS,THERAPY DURATION :
     Route: 048
     Dates: start: 20191209, end: 20191223
  92. CLOZARIL [Suspect]
     Active Substance: CLOZAPINE
     Dosage: UNK UNK, UNKNOWN, UNIT DOSE : 400 MG,THERAPY END DATE : NOT ASKED, THERAPY DURATION : 73 DAYS
     Route: 048
     Dates: start: 20100823
  93. CLOZARIL [Suspect]
     Active Substance: CLOZAPINE
     Dosage: UNK, UNKNOWN, UNIT DOSE : 400 MG,THERAPY DURATION : 73 DAYS
     Route: 048
     Dates: start: 20191223, end: 20191223
  94. CLOZARIL [Suspect]
     Active Substance: CLOZAPINE
     Dosage: 245 MG, UNIT DOSE : 245 MG, THERAPY DURATION : 73 DAYS
     Route: 048
     Dates: start: 20191209, end: 20191223
  95. CLOZARIL [Suspect]
     Active Substance: CLOZAPINE
     Dosage: 245 MILLIGRAM DAILY; (AM), UNIT DOSE : 245  MG, FREQUENCY ; 1 , FREQUENCY TIME : 1 DAYS, THERAPY DUR
     Route: 065
     Dates: start: 20191223, end: 20191223
  96. CLOZARIL [Suspect]
     Active Substance: CLOZAPINE
     Dosage: 400 MILLIGRAM DAILY;  OFF LABEL USE,UNIT DOSE : 400 MG, FREQUENCY ; 1 , FREQUENCY TIME : 1 DAYS, THE
     Route: 065
  97. CLOZARIL [Suspect]
     Active Substance: CLOZAPINE
     Dosage: THERAPY DURATION : 73 DAYS
     Route: 048
     Dates: start: 20191209, end: 20191223
  98. CLOZARIL [Suspect]
     Active Substance: CLOZAPINE
     Dosage: 275 MILLIGRAM DAILY; PM, UNIT DOSE : 275  MG, FREQUENCY ; 1 , FREQUENCY TIME : 1 DAYS, THERAPY DURAT
     Route: 065
  99. CLOZARIL [Suspect]
     Active Substance: CLOZAPINE
     Dosage: 50 MILLIGRAM DAILY; (MIDDAY), UNIT DOSE : 50 MG, FREQUENCY ; 1 , FREQUENCY TIME : 1 DAYS, THERAPY DU
     Route: 065
  100. CLOZARIL [Suspect]
     Active Substance: CLOZAPINE
     Dosage: 245 MILLIGRAM DAILY; UNIT DOSE : 245 MG, FREQUENCY ; 1 , FREQUENCY TIME : 1 DAYS, THERAPY DURATION :
     Dates: start: 20191209, end: 20191223
  101. CLOZARIL [Suspect]
     Active Substance: CLOZAPINE
     Dosage: 50 MILLIGRAM DAILY;  MIDDAY, UNIT DOSE : 50 MG, FREQUENCY ; 1 , FREQUENCY TIME : 1 DAYS, THERAPY DUR
     Route: 065
     Dates: start: 20191209, end: 20191223
  102. CLOZARIL [Suspect]
     Active Substance: CLOZAPINE
     Dosage: 245 MILLIGRAM DAILY; UNIT DOSE : 245 MG, FREQUENCY ; 1 , FREQUENCY TIME : 1 DAYS, THERAPY DURATION :
     Route: 048
     Dates: start: 20200521, end: 2020
  103. CLOZARIL [Suspect]
     Active Substance: CLOZAPINE
     Dosage: 800 MILLIGRAM DAILY; UNIT DOSE : 800 MG, FREQUENCY ; 1 , FREQUENCY TIME : 1 DAYS, THERAPY DURATION :
     Route: 065
  104. CLOZARIL [Suspect]
     Active Substance: CLOZAPINE
     Dosage: 100 MILLIGRAM DAILY; UNIT DOSE : 100 MG, FREQUENCY ; 1 , FREQUENCY TIME : 1 DAYS, THERAPY DURATION :
     Route: 065
  105. CLOZARIL [Suspect]
     Active Substance: CLOZAPINE
     Dosage: 300 MILLIGRAM DAILY; PM, UNIT DOSE : 300 MG, FREQUENCY ; 1 , FREQUENCY TIME : 1 DAYS, THERAPY DURATI
     Route: 065
  106. ZUCLOPENTHIXOL [Suspect]
     Active Substance: ZUCLOPENTHIXOL
     Indication: Product used for unknown indication
     Dosage: 300 MG, WEEKLY (1/W), UNIT DOSE : 300 MG, FREQUENCY ; 1 , FREQUENCY TIME : 1 WEEKS,THERAPY END DATE
     Route: 030
     Dates: start: 20091009
  107. ZUCLOPENTHIXOL [Suspect]
     Active Substance: ZUCLOPENTHIXOL
     Dosage: 400 MG, WEEKLY (1/W), UNIT DOSE : 400 MG, FREQUENCY ; 1 , FREQUENCY TIME : 1 WEEKS, THERAPY DURATION
     Route: 065
     Dates: start: 20040217, end: 20040601
  108. ZUCLOPENTHIXOL [Suspect]
     Active Substance: ZUCLOPENTHIXOL
     Dosage: 400 MG, OTHER (BIWEEKLY), UNIT DOSE : 400 MG, THERAPY DURATION : 106 DAYS
     Route: 065
     Dates: start: 20041018, end: 20041018
  109. ZUCLOPENTHIXOL [Suspect]
     Active Substance: ZUCLOPENTHIXOL
     Dosage: 300 MG, WEEKLY (1/W), UNIT DOSE : 300 MG, FREQUENCY ; 1 , FREQUENCY TIME : 1 WEEKS,THERAPY END DATE
     Route: 030
     Dates: start: 20091018
  110. ZUCLOPENTHIXOL [Suspect]
     Active Substance: ZUCLOPENTHIXOL
     Dosage: 400 MG, CYCLIC (400 MG, BIWEEKLY), UNIT DOSE : 400 MG, THERAPY DURATION : 106 DAYS
     Route: 065
     Dates: start: 20040601, end: 20041018
  111. ZUCLOPENTHIXOL [Suspect]
     Active Substance: ZUCLOPENTHIXOL
     Dosage: 400 MG, CYCLIC (400 MG, BIWEEKLY), UNIT DOSE : 400 MG,  THERAPY DURATION : 106 DAYS
     Route: 065
     Dates: start: 20030204, end: 20040217
  112. ZUCLOPENTHIXOL [Suspect]
     Active Substance: ZUCLOPENTHIXOL
     Dosage: UNK,  THERAPY DURATION : 106 DAYS
     Route: 065
  113. CHLORPROMAZINE [Suspect]
     Active Substance: CHLORPROMAZINE
     Indication: Schizophrenia
     Dosage: UNIT DOSE : 75 MG
     Route: 065
  114. CHLORPROMAZINE [Suspect]
     Active Substance: CHLORPROMAZINE
     Dosage: 75 MG, UNKNOWN, UNIT DOSE : 75 MG
     Route: 065
  115. CHLORPROMAZINE [Suspect]
     Active Substance: CHLORPROMAZINE
     Dosage: 75 MG, UNIT DOSE : 75 MG
     Route: 065
  116. CHLORPROMAZINE [Suspect]
     Active Substance: CHLORPROMAZINE
     Dosage: 75 MG, UNIT DOSE : 75 MG
     Route: 065
  117. CHLORPROMAZINE [Suspect]
     Active Substance: CHLORPROMAZINE
     Dosage: 75 MG, UNIT DOSE : 75 MG
     Route: 065
  118. CHLORPROMAZINE [Suspect]
     Active Substance: CHLORPROMAZINE
     Dosage: 75 MG, UNIT DOSE : 75 MG
     Route: 065
  119. CALCIUM\CHOLECALCIFEROL [Concomitant]
     Active Substance: CALCIUM\CHOLECALCIFEROL
     Indication: Product used for unknown indication
     Dates: start: 20091018
  120. CHLORPHENIRAMINE MALEATE [Concomitant]
     Active Substance: CHLORPHENIRAMINE MALEATE
     Indication: Product used for unknown indication
     Dosage: UNK
  121. AMOXICILLIN\CLAVULANATE POTASSIUM [Concomitant]
     Active Substance: AMOXICILLIN\CLAVULANATE POTASSIUM
     Indication: Product used for unknown indication
     Dosage: 625 MG, QID, UNIT DOSE : 2500 MG, FREQUENCY ; 1 , FREQUENCY TIME : 1 DAYS, THERAPY DURATION : 3 DAYS
     Route: 065
     Dates: start: 20151122, end: 20151125
  122. AMOXICILLIN\CLAVULANATE POTASSIUM [Concomitant]
     Active Substance: AMOXICILLIN\CLAVULANATE POTASSIUM
     Dosage: 120 MG, OTHER (EVERY 9 WEEKS), UNIT DOSE : 625 MG, THERAPY DURATION : 3 DAYS
     Route: 065
     Dates: start: 20151111
  123. DENOSUMAB [Concomitant]
     Active Substance: DENOSUMAB
     Indication: Product used for unknown indication
     Dosage: 625 MG, QID, UNIT DOSE : 120 MG, FREQUENCY ; 1 , FREQUENCY TIME : 1 DAYS,
     Dates: start: 20150930
  124. DENOSUMAB [Concomitant]
     Active Substance: DENOSUMAB
     Dosage: 120 MG, OTHER (EVERY 9 WEEKS), UNIT DOSE : 120 MG
  125. DULOXETINE [Concomitant]
     Active Substance: DULOXETINE
     Indication: Product used for unknown indication
  126. GENTAMICIN [Concomitant]
     Active Substance: GENTAMICIN
     Indication: Febrile neutropenia
     Dates: start: 20151121
  127. LEVOFLOXACIN [Concomitant]
     Active Substance: LEVOFLOXACIN
     Indication: Febrile neutropenia
     Dosage: 500 MILLIGRAM DAILY; UNIT DOSE : 500 MG, FREQUENCY TIME : 1 DAYS
     Dates: start: 20151125
  128. MIRTAZAPINE [Concomitant]
     Active Substance: MIRTAZAPINE
     Indication: Product used for unknown indication
     Dosage: 15 MILLIGRAM DAILY; UNIT DOSE : 15 MG, FREQUENCY TIME : 1 DAYS
     Dates: start: 201510
  129. MORPHINE [Concomitant]
     Active Substance: MORPHINE
     Indication: Product used for unknown indication
     Dosage: 15 MILLIGRAM DAILY; UNIT DOSE : 15 MG, FREQUENCY TIME : 1 DAYS
     Dates: start: 201510

REACTIONS (28)
  - Schizophrenia [Fatal]
  - Delusion of grandeur [Fatal]
  - Lymphocyte count decreased [Fatal]
  - Platelet count decreased [Fatal]
  - Fatigue [Fatal]
  - Diarrhoea [Fatal]
  - Cellulitis [Fatal]
  - Seizure [Fatal]
  - Neutrophil count increased [Fatal]
  - Neuropathy peripheral [Fatal]
  - Mucosal inflammation [Fatal]
  - Psychotic disorder [Fatal]
  - Neoplasm progression [Fatal]
  - Neutropenia [Fatal]
  - Nausea [Fatal]
  - Nasal discomfort [Fatal]
  - Hallucination, auditory [Fatal]
  - COVID-19 [Fatal]
  - SARS-CoV-2 test positive [Fatal]
  - Dyspepsia [Fatal]
  - Alopecia [Fatal]
  - Extrapyramidal disorder [Fatal]
  - Leukopenia [Fatal]
  - Fatigue [Fatal]
  - Affective disorder [Fatal]
  - Incorrect dose administered [Fatal]
  - Off label use [Unknown]
  - Off label use [Unknown]

NARRATIVE: CASE EVENT DATE: 20151101
